FAERS Safety Report 18590698 (Version 1)
Quarter: 2020Q4

REPORT INFORMATION
  Report Type: Spontaneous
  Country: US (occurrence: US)
  Receive Date: 20201208
  Receipt Date: 20201208
  Transmission Date: 20210114
  Serious: Yes (Life-Threatening, Disabling)
  Sender: FDA-Public Use
  Company Number: None

PATIENT
  Age: 41 Year
  Sex: Female
  Weight: 69.3 kg

DRUGS (4)
  1. NUROTIN [Concomitant]
  2. PROTONIX [Concomitant]
     Active Substance: PANTOPRAZOLE SODIUM
  3. DEXTROAMPHET SACCHARAT, AMPHET ASPARTATE, DEXTROAMPHET SULFATE AND AMPHET SULFAT [Suspect]
     Active Substance: AMPHETAMINE ASPARTATE\AMPHETAMINE SULFATE\DEXTROAMPHETAMINE SACCHARATE\DEXTROAMPHETAMINE SULFATE
     Indication: ATTENTION DEFICIT HYPERACTIVITY DISORDER
     Dosage: ?          QUANTITY:60 TABLET(S);?
     Route: 048
     Dates: start: 20201130, end: 20201208
  4. SABOXONE [Concomitant]

REACTIONS (12)
  - Chest pain [None]
  - Adverse drug reaction [None]
  - Blood pressure increased [None]
  - Tunnel vision [None]
  - Heart rate increased [None]
  - Anxiety [None]
  - Feeling of despair [None]
  - Agitation [None]
  - Headache [None]
  - Depression [None]
  - Paranoia [None]
  - Pain in extremity [None]

NARRATIVE: CASE EVENT DATE: 20201130
